FAERS Safety Report 12844376 (Version 1)
Quarter: 2016Q4

REPORT INFORMATION
  Report Type: Report from Study
  Country: CA (occurrence: CA)
  Receive Date: 20161013
  Receipt Date: 20161013
  Transmission Date: 20170207
  Serious: Yes (Other)
  Sender: FDA-Public Use
  Company Number: PHHY2016CA136793

PATIENT
  Age: 38 Year
  Sex: Male

DRUGS (5)
  1. VENTOLIN [Concomitant]
     Active Substance: ALBUTEROL SULFATE
     Indication: PRODUCT USED FOR UNKNOWN INDICATION
     Dosage: 1 DF, TID
     Route: 065
  2. ASMANEX [Concomitant]
     Active Substance: MOMETASONE FUROATE
     Indication: PRODUCT USED FOR UNKNOWN INDICATION
     Dosage: 1 DF, QD
     Route: 065
  3. ULTIBRO BREEZHALER [Suspect]
     Active Substance: GLYCOPYRRONIUM\INDACATEROL
     Indication: ASTHMA
     Dosage: 1 DF, QD
     Route: 065
     Dates: start: 20160201
  4. ADVAIR HFA [Concomitant]
     Active Substance: FLUTICASONE PROPIONATE\SALMETEROL XINAFOATE
     Indication: PRODUCT USED FOR UNKNOWN INDICATION
     Dosage: UNK
     Route: 065
  5. APO-HYDROXYZINE [Concomitant]
     Active Substance: HYDROXYZINE HYDROCHLORIDE
     Indication: PRODUCT USED FOR UNKNOWN INDICATION
     Dosage: 1 DF, QD
     Route: 065

REACTIONS (15)
  - Eczema [Unknown]
  - Eye discharge [Unknown]
  - Eye oedema [Unknown]
  - Product use issue [Unknown]
  - Asthmatic crisis [Unknown]
  - Skin haemorrhage [Unknown]
  - Emphysema [Unknown]
  - Nasopharyngitis [Unknown]
  - Asthma [Unknown]
  - Throat irritation [Unknown]
  - Eye irritation [Unknown]
  - Productive cough [Unknown]
  - Scratch [Unknown]
  - Eye pruritus [Unknown]
  - Confusional state [Unknown]

NARRATIVE: CASE EVENT DATE: 20160201
